FAERS Safety Report 25354764 (Version 3)
Quarter: 2025Q2

REPORT INFORMATION
  Report Type: Spontaneous
  Country: US (occurrence: US)
  Receive Date: 20250524
  Receipt Date: 20250606
  Transmission Date: 20250717
  Serious: Yes (Other)
  Sender: SANOFI AVENTIS
  Company Number: US-SANOFI-02531484

PATIENT
  Sex: Male

DRUGS (18)
  1. DUPIXENT [Suspect]
     Active Substance: DUPILUMAB
     Indication: Prostatic disorder
     Dosage: 300 MG, QOW
     Route: 058
     Dates: start: 202503
  2. ALBUTEROL SULFATE [Concomitant]
     Active Substance: ALBUTEROL SULFATE
  3. ALLEGRA ALLERGY [Concomitant]
     Active Substance: FEXOFENADINE HYDROCHLORIDE
  4. BUDESONIDE [Concomitant]
     Active Substance: BUDESONIDE
  5. FAMOTIDINE [Concomitant]
     Active Substance: FAMOTIDINE
  6. FLUTICASONE [Concomitant]
     Active Substance: FLUTICASONE
  7. GAS RELIEF [Concomitant]
     Active Substance: DIMETHICONE
  8. GINGER [Concomitant]
     Active Substance: GINGER
  9. IBUPROFEN [Concomitant]
     Active Substance: IBUPROFEN
  10. IPRATROPIUM [Concomitant]
     Active Substance: IPRATROPIUM
  11. LISINOPRIL H [Concomitant]
  12. LORAZEPAM [Concomitant]
     Active Substance: LORAZEPAM
  13. MUCINEX [Concomitant]
     Active Substance: GUAIFENESIN
  14. MULLEIN [Concomitant]
  15. VITAMINS NOS [Concomitant]
     Active Substance: VITAMINS
  16. TAMSULOSIN HYDROCHLORIDE [Concomitant]
     Active Substance: TAMSULOSIN HYDROCHLORIDE
  17. VITAMIN D3 [Concomitant]
     Active Substance: CHOLECALCIFEROL
  18. ROSUVASTATIN [Concomitant]
     Active Substance: ROSUVASTATIN

REACTIONS (2)
  - Loss of consciousness [Not Recovered/Not Resolved]
  - Product use in unapproved indication [Unknown]

NARRATIVE: CASE EVENT DATE: 20250101
